FAERS Safety Report 9736146 (Version 1)
Quarter: 2013Q4

REPORT INFORMATION
  Report Type: Spontaneous
  Country: SK (occurrence: SK)
  Receive Date: 20131206
  Receipt Date: 20131206
  Transmission Date: 20140711
  Serious: Yes (Hospitalization)
  Sender: FDA-Public Use
  Company Number: SK-ROCHE-1311808

PATIENT
  Age: 66 Year
  Sex: Male
  Weight: 89 kg

DRUGS (7)
  1. ALTEPLASE [Suspect]
     Indication: CEREBROVASCULAR ACCIDENT
     Route: 042
  2. CONCOR 5 [Concomitant]
     Indication: HYPERTENSION
     Route: 048
  3. COAPROVEL [Concomitant]
     Indication: HYPERTENSION
     Dosage: DOSE PER APPLICATION: 300/12.5
     Route: 048
  4. CYNT (SLOVAKIA) [Concomitant]
     Indication: HYPERTENSION
     Route: 048
  5. TULIP [Concomitant]
     Indication: HYPERCHOLESTEROLAEMIA
     Route: 048
  6. PREDUCTAL MR [Concomitant]
     Indication: ANGINA PECTORIS
     Route: 048
  7. TENAXUM [Concomitant]
     Indication: HYPERTENSION
     Route: 048

REACTIONS (1)
  - Cerebrovascular accident [Not Recovered/Not Resolved]
